FAERS Safety Report 4995083-4 (Version None)
Quarter: 2006Q2

REPORT INFORMATION
  Report Type: 
  Country: None (occurrence: None)
  Receive Date: 20060503
  Receipt Date: 20060419
  Transmission Date: 20061013
  Serious: Yes (Hospitalization)
  Sender: FDA-Public Use
  Company Number: 200612088BWH

PATIENT
  Age: 62 Year
  Sex: Female
  Weight: 63 kg

DRUGS (2)
  1. SORAFENIB [Suspect]
     Indication: NON-SMALL CELL LUNG CANCER
     Dosage: 400 MG, BID, ORAL
     Route: 048
     Dates: start: 20060208, end: 20060324
  2. ACYCLOVIR [Concomitant]

REACTIONS (5)
  - CHEST PAIN [None]
  - DISEASE PROGRESSION [None]
  - HERPES VIRUS INFECTION [None]
  - HYDROPNEUMOTHORAX [None]
  - HYPOXIA [None]
